FAERS Safety Report 20977413 (Version 2)
Quarter: 2023Q2

REPORT INFORMATION
  Report Type: Spontaneous
  Country: HR (occurrence: HR)
  Receive Date: 20220617
  Receipt Date: 20230613
  Transmission Date: 20230722
  Serious: Yes (Other)
  Sender: FDA-Public Use
  Company Number: HR-ABBVIE-22K-216-4418032-00

PATIENT
  Age: 69 Year
  Sex: Female

DRUGS (5)
  1. VENETOCLAX [Suspect]
     Active Substance: VENETOCLAX
     Indication: B-cell small lymphocytic lymphoma
     Route: 048
     Dates: start: 20211031
  2. VENETOCLAX [Suspect]
     Active Substance: VENETOCLAX
     Indication: Chronic lymphocytic leukaemia
     Dosage: RAMP-UP FROM 20 TO 400 MILIGRAM, IN CYCLES
     Route: 065
     Dates: start: 20211231
  3. VENETOCLAX [Suspect]
     Active Substance: VENETOCLAX
     Route: 065
  4. OBINUTUZUMAB [Suspect]
     Active Substance: OBINUTUZUMAB
     Indication: Chronic lymphocytic leukaemia
     Route: 065
     Dates: start: 20211031
  5. OBINUTUZUMAB [Suspect]
     Active Substance: OBINUTUZUMAB
     Indication: B-cell small lymphocytic lymphoma

REACTIONS (10)
  - Headache [Unknown]
  - Chronic obstructive pulmonary disease [Recovered/Resolved]
  - Neutropenia [Unknown]
  - Lymphadenopathy [Recovered/Resolved]
  - Thrombocytopenia [Unknown]
  - Sympathetic posterior cervical syndrome [Unknown]
  - Bronchitis [Recovered/Resolved]
  - Oedema [Unknown]
  - Anaemia [Unknown]
  - Lymphoedema [Recovered/Resolved]

NARRATIVE: CASE EVENT DATE: 20220816
